FAERS Safety Report 18861761 (Version 1)
Quarter: 2021Q1

REPORT INFORMATION
  Report Type: Spontaneous
  Country: DE (occurrence: DE)
  Receive Date: 20210208
  Receipt Date: 20210208
  Transmission Date: 20210420
  Serious: Yes (Other)
  Sender: FDA-Public Use
  Company Number: NVSC2021DE023620

PATIENT
  Age: 64 Year
  Sex: Male
  Weight: 110 kg

DRUGS (2)
  1. RAMIPRIL. [Suspect]
     Active Substance: RAMIPRIL
     Indication: HYPERTENSION
     Dosage: 1 DF, QD
     Route: 048
  2. NAPROXEN 500 MG HEXAL, TABLETTEN [Suspect]
     Active Substance: NAPROXEN
     Indication: PRODUCT USED FOR UNKNOWN INDICATION
     Dosage: 1000 MG, QD(500)
     Route: 048
     Dates: start: 20210122

REACTIONS (1)
  - Obstructive airways disorder [Not Recovered/Not Resolved]

NARRATIVE: CASE EVENT DATE: 20210123
